FAERS Safety Report 6306511-6 (Version None)
Quarter: 2009Q3

REPORT INFORMATION
  Report Type: 
  Country: None (occurrence: None)
  Receive Date: 20090811
  Receipt Date: 20090811
  Transmission Date: 20100115
  Serious: Yes (Hospitalization)
  Sender: FDA-Public Use
  Company Number: None

PATIENT
  Age: 89 Year
  Sex: Female
  Weight: 106 kg

DRUGS (12)
  1. TYGACIL [Suspect]
     Indication: INFECTION
     Dosage: 50MG Q12HOURS IV DRIP
     Route: 041
     Dates: start: 20090716, end: 20090726
  2. TIGECYCLINE [Concomitant]
  3. ALBUTEROL [Concomitant]
  4. ALLOPURINOL [Concomitant]
  5. ENOXAPARIN SODIUM [Concomitant]
  6. FAMOTIDINE [Concomitant]
  7. IV FATEMULSION [Concomitant]
  8. HYDROCORTISONE [Concomitant]
  9. HYDROMORPHONE HCL [Concomitant]
  10. INSULIN ASPART [Concomitant]
  11. IPRATROPIUM NEBULIZER [Concomitant]
  12. WARFARIN [Concomitant]

REACTIONS (1)
  - PANCREATITIS [None]
